FAERS Safety Report 7283563-0 (Version None)
Quarter: 2011Q1

REPORT INFORMATION
  Report Type: 
  Country: None (occurrence: None)
  Receive Date: 20110209
  Receipt Date: 20110204
  Transmission Date: 20110831
  Serious: Yes (Hospitalization)
  Sender: FDA-Public Use
  Company Number: A0779241A

PATIENT
  Age: 49 Year
  Sex: Female
  Weight: 109.5 kg

DRUGS (7)
  1. ENALAPRIL MALEATE [Concomitant]
  2. XANAX [Concomitant]
  3. AVANDIA [Suspect]
     Indication: DIABETES MELLITUS
     Dosage: 8MG PER DAY
     Route: 048
     Dates: start: 20060627, end: 20070801
  4. CIPROFLOXACIN [Concomitant]
  5. ZANTAC [Concomitant]
  6. LOPID [Concomitant]
  7. PROCHLORPERAZINE [Concomitant]

REACTIONS (2)
  - ARRHYTHMIA [None]
  - CARDIAC FAILURE CONGESTIVE [None]
